FAERS Safety Report 7659715-4 (Version None)
Quarter: 2011Q3

REPORT INFORMATION
  Report Type: 
  Country: None (occurrence: None)
  Receive Date: 20110805
  Receipt Date: 20110729
  Transmission Date: 20111222
  Serious: Yes (Hospitalization, Other)
  Sender: FDA-Public Use
  Company Number: JP-CEPHALON-2011002594

PATIENT
  Age: 56 Year
  Sex: Male

DRUGS (2)
  1. BENDAMUSTINE HCL [Suspect]
     Indication: B-CELL LYMPHOMA
     Route: 042
     Dates: start: 20110421, end: 20110422
  2. BENDAMUSTINE HCL [Suspect]
     Route: 042
     Dates: start: 20110714, end: 20110715

REACTIONS (3)
  - PLATELET COUNT DECREASED [None]
  - PERITONEAL PERFORATION [None]
  - NEUTROPHIL COUNT DECREASED [None]
